FAERS Safety Report 10777893 (Version 2)
Quarter: 2015Q1

REPORT INFORMATION
  Report Type: Spontaneous
  Country: DE (occurrence: DE)
  Receive Date: 20150209
  Receipt Date: 20150227
  Transmission Date: 20150721
  Serious: Yes (Other)
  Sender: FDA-Public Use
  Company Number: DE-PFIZER INC-2015045464

PATIENT
  Age: 70 Year
  Sex: Female

DRUGS (4)
  1. RAMILICH [Suspect]
     Active Substance: RAMIPRIL
     Dosage: 5 MG, UNK
     Route: 065
  2. RAMILICH [Suspect]
     Active Substance: RAMIPRIL
     Dosage: UNK
  3. RAMILICH [Suspect]
     Active Substance: RAMIPRIL
     Dosage: 10 MG, DAILY
     Route: 048
     Dates: start: 2015
  4. RAMILICH [Suspect]
     Active Substance: RAMIPRIL
     Dosage: 20 MG, DAILY
     Route: 048
     Dates: start: 201501

REACTIONS (3)
  - Tachycardia [Not Recovered/Not Resolved]
  - Blood pressure increased [Not Recovered/Not Resolved]
  - Agitation [Not Recovered/Not Resolved]

NARRATIVE: CASE EVENT DATE: 201501
